FAERS Safety Report 13214583 (Version 6)
Quarter: 2017Q3

REPORT INFORMATION
  Report Type: Spontaneous
  Country: US (occurrence: US)
  Receive Date: 20170210
  Receipt Date: 20170922
  Transmission Date: 20171127
  Serious: Yes (Hospitalization)
  Sender: FDA-Public Use
  Company Number: US-IMPAX LABORATORIES, INC-2017-IPXL-00168

PATIENT
  Age: 81 Year
  Sex: Female
  Weight: 48 kg

DRUGS (12)
  1. RYTARY [Suspect]
     Active Substance: CARBIDOPA\LEVODOPA
     Dosage: (48.75/195) MG FOUR CAPSULES FOUR TIMES DAILY
     Route: 048
     Dates: start: 20170113, end: 201701
  2. RYTARY [Suspect]
     Active Substance: CARBIDOPA\LEVODOPA
     Dosage: 48.75 MG/195 MG 2 CAPSULES TWICE A DAY AND ONE CAPSULE TWICE A DAY
     Route: 048
     Dates: start: 2017
  3. ORENCIA [Concomitant]
     Active Substance: ABATACEPT
     Indication: RHEUMATOID ARTHRITIS
     Dosage: UNK
     Route: 065
  4. RYTARY [Suspect]
     Active Substance: CARBIDOPA\LEVODOPA
     Indication: PARKINSON^S DISEASE
     Dosage: UNK
     Route: 048
     Dates: start: 2016
  5. RYTARY [Suspect]
     Active Substance: CARBIDOPA\LEVODOPA
     Dosage: (23.75/95 MG) 1 DF 4 /DAY + (36.25/145 MG) 2 DF 4 /DAY AND (36.25/145 MG) 1 DF IN LATE AFTERNOON
     Route: 048
  6. CARBIDOPA-LEVODOPA ER [Suspect]
     Active Substance: CARBIDOPA\LEVODOPA
     Indication: PARKINSON^S DISEASE
     Dosage: 25/100 MG, 4 TIMES A DAY
     Route: 065
  7. RYTARY [Suspect]
     Active Substance: CARBIDOPA\LEVODOPA
     Dosage: 48.75/195MG 3 CAPSULES FOUR TIMES DAILY, 4 /DAY
     Route: 048
     Dates: start: 20170118
  8. MIRTAZAPINE. [Concomitant]
     Active Substance: MIRTAZAPINE
     Indication: APPETITE DISORDER
     Dosage: 15 MG, UNK
     Route: 065
  9. RYTARY [Suspect]
     Active Substance: CARBIDOPA\LEVODOPA
     Dosage: 48.75/195 MG 2 CAPSULES FOUR TIMES A DAY AT 07 AM, NOON, 5 PM AND 10 PM AT BEDTIME
     Route: 048
  10. RYTARY [Suspect]
     Active Substance: CARBIDOPA\LEVODOPA
     Dosage: (48.75/195) MG 2 CAPSULE, EVERY 5 HOUR
     Route: 048
     Dates: start: 2017, end: 2017
  11. RYTARY [Suspect]
     Active Substance: CARBIDOPA\LEVODOPA
     Dosage: 48.75/195 MG 2 CAPSULES FOUR TIMES A DAY
     Route: 048
  12. MIRALAX [Concomitant]
     Active Substance: POLYETHYLENE GLYCOL 3350
     Indication: CONSTIPATION
     Dosage: UNK, PRN
     Route: 065

REACTIONS (16)
  - Panic attack [Recovered/Resolved]
  - Dry mouth [Not Recovered/Not Resolved]
  - Agitation [Recovered/Resolved]
  - Fatigue [Not Recovered/Not Resolved]
  - Abdominal discomfort [Recovered/Resolved]
  - Dyskinesia [Recovered/Resolved]
  - Eye irritation [Not Recovered/Not Resolved]
  - Blood pressure decreased [Not Recovered/Not Resolved]
  - Product use complaint [Not Recovered/Not Resolved]
  - Pollakiuria [Recovered/Resolved]
  - Somnolence [Not Recovered/Not Resolved]
  - Psychotic disorder [Recovered/Resolved]
  - Constipation [Recovered/Resolved]
  - Therapeutic response shortened [Unknown]
  - Urinary retention [Recovered/Resolved]
  - Anxiety [Recovered/Resolved]

NARRATIVE: CASE EVENT DATE: 2016
